FAERS Safety Report 4492778-6 (Version None)
Quarter: 2004Q4

REPORT INFORMATION
  Report Type: 
  Country: None (occurrence: None)
  Receive Date: 20041102
  Receipt Date: 20041027
  Transmission Date: 20050328
  Serious: Yes (Hospitalization)
  Sender: FDA-Public Use
  Company Number: B0349580A

PATIENT
  Age: 47 Year
  Sex: Male

DRUGS (6)
  1. ZANTAC [Suspect]
     Dosage: INTRAVENOUS
     Route: 042
     Dates: start: 20040826, end: 20040901
  2. AUGMENTIN '250' [Suspect]
     Dosage: INTRAVENOUS
     Route: 042
     Dates: start: 20040826, end: 20040830
  3. TRAMADOL HCL [Suspect]
     Dosage: ORAL
     Route: 048
     Dates: end: 20040902
  4. CEFTRIAXONE [Suspect]
     Dosage: INTRAVENOUS
     Route: 042
     Dates: start: 20040830, end: 20040902
  5. OFLOXACIN [Suspect]
     Dates: start: 20040831, end: 20040902
  6. HEPARIN SODIUM [Suspect]
     Dosage: INTRAVENOUS
     Route: 042
     Dates: start: 20040826, end: 20040830

REACTIONS (5)
  - DERMATOSIS [None]
  - ERYTHEMA [None]
  - FEELING HOT [None]
  - PURPURA [None]
  - RASH PAPULAR [None]
